FAERS Safety Report 5212687-4 (Version None)
Quarter: 2007Q1

REPORT INFORMATION
  Report Type: 
  Country: None (occurrence: None)
  Receive Date: 20061115
  Receipt Date: 20060719
  Transmission Date: 20070707
  Serious: No
  Sender: FDA-Public Use
  Company Number: 200613218BWH

PATIENT
  Age: 80 Year
  Sex: Male

DRUGS (10)
  1. NEXAVAR [Suspect]
     Indication: RENAL CELL CARCINOMA STAGE UNSPECIFIED
     Dosage: SEE IMAGE
     Route: 048
     Dates: start: 20060412
  2. NEXAVAR [Suspect]
     Indication: RENAL CELL CARCINOMA STAGE UNSPECIFIED
     Dosage: SEE IMAGE
     Route: 048
     Dates: start: 20060623
  3. RANITIDINE [Concomitant]
  4. NORVASC [Concomitant]
  5. TOPROL-XL [Concomitant]
  6. ZOCOR [Concomitant]
  7. LUMIGAN [Concomitant]
  8. ASPIRIN [Concomitant]
  9. VITAMINS [Concomitant]
  10. GLUCOTROL [Concomitant]

REACTIONS (2)
  - BLOOD GLUCOSE INCREASED [None]
  - DYSPHONIA [None]
